FAERS Safety Report 24899891 (Version 1)
Quarter: 2025Q1

REPORT INFORMATION
  Report Type: Spontaneous
  Country: US (occurrence: None)
  Receive Date: 20250129
  Receipt Date: 20250129
  Transmission Date: 20250409
  Serious: Yes (Hospitalization)
  Sender: FDA-CTU
  Company Number: None

PATIENT
  Sex: Female

DRUGS (11)
  1. OMNITROPE [Suspect]
     Active Substance: SOMATROPIN
     Indication: Hypopituitarism
     Route: 058
     Dates: start: 20170105
  2. CORTEF TAB 5MG [Concomitant]
  3. DDAVP SPR 0.01% [Concomitant]
  4. EFFEXOR XR CAP 75MG [Concomitant]
  5. LEVOXYL TAB 50MCG [Concomitant]
  6. LIPITOR TAB 10MG [Concomitant]
  7. LORAZEPAM TAB1MG [Concomitant]
  8. NEXIUM CAP 20MG [Concomitant]
  9. NEXIUM CAP 20MG [Concomitant]
  10. NORVASC TAB 2.5MG [Concomitant]
  11. TRAZODONE [Concomitant]
     Active Substance: TRAZODONE HYDROCHLORIDE

REACTIONS (2)
  - Hospitalisation [None]
  - Intentional dose omission [None]
